FAERS Safety Report 7825398-3 (Version None)
Quarter: 2011Q4

REPORT INFORMATION
  Report Type: 
  Country: None (occurrence: None)
  Receive Date: 20111019
  Receipt Date: 20111011
  Transmission Date: 20120403
  Serious: Yes (Other)
  Sender: FDA-Public Use
  Company Number: US-JNJFOC-20111005393

PATIENT
  Sex: Male
  Weight: 63.5 kg

DRUGS (5)
  1. STELARA [Suspect]
     Indication: PSORIASIS
     Route: 058
     Dates: start: 20100601
  2. PERCOCET [Concomitant]
  3. FINASTERIDE [Concomitant]
  4. BENADRYL [Concomitant]
  5. MORPHINE [Concomitant]

REACTIONS (3)
  - HYPOAESTHESIA [None]
  - HEADACHE [None]
  - DYSARTHRIA [None]
